FAERS Safety Report 11107417 (Version 1)
Quarter: 2015Q2

REPORT INFORMATION
  Report Type: Spontaneous
  Country: US (occurrence: US)
  Receive Date: 20150512
  Receipt Date: 20150512
  Transmission Date: 20150821
  Serious: No
  Sender: FDA-Public Use
  Company Number: US-BAUSCH-BL-2014-002205

PATIENT
  Sex: Female

DRUGS (1)
  1. BROMFENAC OPHTHALMIC SOLUTION, 0.09% [Suspect]
     Active Substance: BROMFENAC SODIUM
     Indication: POSTOPERATIVE CARE
     Dosage: 1 DROP TWICE DAILY
     Route: 047

REACTIONS (2)
  - No adverse event [Unknown]
  - Drug prescribing error [Unknown]
